FAERS Safety Report 8889146 (Version 2)
Quarter: 2012Q4

REPORT INFORMATION
  Report Type: 
  Country: CO (occurrence: CO)
  Receive Date: 20121106
  Receipt Date: 20121112
  Transmission Date: 20130627
  Serious: Yes (Hospitalization)
  Sender: FDA-Public Use
  Company Number: CO-ROCHE-CID000000002218785

PATIENT
  Age: 50 Year
  Sex: Female

DRUGS (4)
  1. XOLAIR [Suspect]
     Indication: ASTHMA
     Dosage: one ampoule every 15 days
     Route: 030
     Dates: start: 20120622, end: 20121024
  2. XOLAIR [Suspect]
     Dosage: one ampoule every 15 days
     Route: 030
     Dates: start: 20121031
  3. MONTELUKAST [Concomitant]
  4. SYMBICORT [Concomitant]

REACTIONS (1)
  - Asthmatic crisis [Recovering/Resolving]
